FAERS Safety Report 5506170-6 (Version None)
Quarter: 2007Q4

REPORT INFORMATION
  Report Type: 
  Country: None (occurrence: None)
  Receive Date: 20071102
  Receipt Date: 20071102
  Transmission Date: 20080405
  Serious: Yes (Death)
  Sender: FDA-Public Use
  Company Number: None

PATIENT
  Age: 54 Year
  Sex: Female

DRUGS (10)
  1. AZITHROMYCIN [Suspect]
     Indication: UPPER RESPIRATORY TRACT INFECTION
     Dosage: 500 MG DAILY PO
     Route: 048
     Dates: start: 20060820, end: 20060824
  2. LEVAQUIN [Concomitant]
  3. PREDNISONE [Concomitant]
  4. COLACE [Concomitant]
  5. HEPARIN [Concomitant]
  6. MAGIC MOUTHWASH [Concomitant]
  7. VITAMIN CAP [Concomitant]
  8. EYEDROPS [Concomitant]
  9. PANTOPRAZOLE SODIUM [Concomitant]
  10. SUCRALFATE [Concomitant]

REACTIONS (2)
  - MULTI-ORGAN FAILURE [None]
  - STEVENS-JOHNSON SYNDROME [None]
